FAERS Safety Report 20181148 (Version 1)
Quarter: 2021Q4

REPORT INFORMATION
  Report Type: Spontaneous
  Country: CN (occurrence: None)
  Receive Date: 20211214
  Receipt Date: 20211214
  Transmission Date: 20220303
  Serious: Yes (Hospitalization)
  Sender: FDA-Public Use
  Company Number: 2021A853796

PATIENT
  Age: 58 Year
  Sex: Male

DRUGS (1)
  1. IMFINZI [Suspect]
     Active Substance: DURVALUMAB
     Indication: Small cell lung cancer
     Dosage: TWO VIALS OF 500MG, 1000MG TOTAL
     Route: 042
     Dates: start: 202108

REACTIONS (5)
  - Acute kidney injury [Recovering/Resolving]
  - Swelling face [Recovering/Resolving]
  - Deformity [Recovering/Resolving]
  - Rash [Recovering/Resolving]
  - Immune-mediated nephritis [Unknown]

NARRATIVE: CASE EVENT DATE: 20211101
